FAERS Safety Report 9671193 (Version 2)
Quarter: 2014Q2

REPORT INFORMATION
  Report Type: Report from Study
  Country: JP (occurrence: JP)
  Receive Date: 20131106
  Receipt Date: 20140424
  Transmission Date: 20141212
  Serious: Yes (Death, Other)
  Sender: FDA-Public Use
  Company Number: JP-ASTELLAS-2013US003871

PATIENT
  Sex: 0

DRUGS (3)
  1. ERLOTINIB [Suspect]
     Indication: NON-SMALL CELL LUNG CANCER
     Route: 065
  2. S-1 (5-FU DERIVATIVE) (GIMERACIL, OTERACIL POTASSIUM) [Suspect]
     Indication: NON-SMALL CELL LUNG CANCER
     Dosage: 60 MG/M2, DAILY IN , TWO 3 WEEK CYCLES
     Route: 065
  3. S-1 (5-FU DERIVATIVE) (GIMERACIL, OTERACIL POTASSIUM) [Suspect]
     Dosage: 80 MG/M2, DAILY IN , TWO 3 WEEK CYCLES
     Route: 065

REACTIONS (3)
  - Death [Fatal]
  - Acute respiratory failure [Unknown]
  - Dehydration [Unknown]
